FAERS Safety Report 4778966-X (Version None)
Quarter: 2005Q3

REPORT INFORMATION
  Report Type: 
  Country: None (occurrence: None)
  Receive Date: 20050922
  Receipt Date: 20050914
  Transmission Date: 20060218
  Serious: Yes (Life-Threatening)
  Sender: FDA-Public Use
  Company Number: 2005-131029-NL

PATIENT
  Age: 14 Year
  Sex: Female

DRUGS (4)
  1. VECURONIUM BROMIDE [Suspect]
     Indication: INDUCTION OF ANAESTHESIA
  2. SEVOFLURANE [Suspect]
     Dosage: RESPIRATORY (INHALATION)
     Route: 055
  3. PROPOFOL [Concomitant]
  4. NITROUS OXIDE W/ OXYGEN [Concomitant]

REACTIONS (5)
  - ACIDOSIS [None]
  - HYPERKALAEMIA [None]
  - HYPERTHERMIA MALIGNANT [None]
  - PROCEDURAL COMPLICATION [None]
  - TACHYCARDIA [None]
